FAERS Safety Report 18646094 (Version 4)
Quarter: 2021Q1

REPORT INFORMATION
  Report Type: Spontaneous
  Country: US (occurrence: US)
  Receive Date: 20201221
  Receipt Date: 20210330
  Transmission Date: 20210419
  Serious: Yes (Hospitalization, Other)
  Sender: FDA-Public Use
  Company Number: US-ABBVIE-20K-163-3689658-00

PATIENT
  Age: 80 Year
  Sex: Male
  Weight: 79.9 kg

DRUGS (5)
  1. ANDROGEL [Suspect]
     Active Substance: TESTOSTERONE
     Indication: OSTEOPOROSIS
  2. VYTORIN [Concomitant]
     Active Substance: EZETIMIBE\SIMVASTATIN
     Indication: BLOOD CHOLESTEROL
  3. SIMVASTATIN. [Concomitant]
     Active Substance: SIMVASTATIN
     Indication: BLOOD CHOLESTEROL INCREASED
  4. SYNTHROID [Concomitant]
     Active Substance: LEVOTHYROXINE SODIUM
     Indication: HYPOTHYROIDISM
     Route: 048
     Dates: start: 2001
  5. ANDROGEL [Suspect]
     Active Substance: TESTOSTERONE
     Indication: PRIMARY HYPOGONADISM
     Dosage: ANDROGEL PUMP 1 PUMP DAILY
     Route: 061
     Dates: start: 2011, end: 202009

REACTIONS (12)
  - Mood swings [Recovering/Resolving]
  - Depressed level of consciousness [Recovered/Resolved]
  - Irritability [Recovering/Resolving]
  - Off label use [Recovered/Resolved]
  - Cerebrovascular accident [Recovering/Resolving]
  - Sleep disorder [Recovering/Resolving]
  - Fatigue [Recovering/Resolving]
  - Weight increased [Recovering/Resolving]
  - Carotid artery occlusion [Recovering/Resolving]
  - Taste disorder [Recovering/Resolving]
  - Abdominal discomfort [Recovering/Resolving]
  - Aphasia [Not Recovered/Not Resolved]

NARRATIVE: CASE EVENT DATE: 2020
